FAERS Safety Report 22181040 (Version 5)
Quarter: 2023Q2

REPORT INFORMATION
  Report Type: Report from Study
  Country: US (occurrence: US)
  Receive Date: 20230406
  Receipt Date: 20230504
  Transmission Date: 20230722
  Serious: Yes (Other)
  Sender: FDA-Public Use
  Company Number: US-002147023-NVSC2023US074899

PATIENT
  Sex: Female

DRUGS (3)
  1. PREDNISONE [Suspect]
     Active Substance: PREDNISONE
     Indication: Lupus nephritis
     Dosage: UNK
     Route: 065
  2. CORTISONE [Suspect]
     Active Substance: CORTISONE
     Indication: Systemic lupus erythematosus
     Dosage: UNK
     Route: 065
  3. CORTISONE [Suspect]
     Active Substance: CORTISONE
     Indication: Arthritis

REACTIONS (38)
  - Nephritis [Unknown]
  - Noninfective encephalitis [Unknown]
  - Hallucination [Unknown]
  - Lupus-like syndrome [Unknown]
  - Brain fog [Unknown]
  - Systemic lupus erythematosus [Unknown]
  - Weight fluctuation [Unknown]
  - Arthralgia [Unknown]
  - Gait disturbance [Unknown]
  - Eating disorder [Unknown]
  - Skin injury [Unknown]
  - Butterfly rash [Unknown]
  - Pruritus [Unknown]
  - Emotional distress [Unknown]
  - Fatigue [Unknown]
  - Alopecia [Unknown]
  - Bone density decreased [Unknown]
  - Skin atrophy [Unknown]
  - Depressed mood [Unknown]
  - Illness [Unknown]
  - Nausea [Unknown]
  - Headache [Unknown]
  - Memory impairment [Unknown]
  - Pain [Unknown]
  - Photosensitivity reaction [Unknown]
  - Skin hyperpigmentation [Unknown]
  - Skin burning sensation [Unknown]
  - Mouth ulceration [Unknown]
  - Arthritis [Unknown]
  - Pain in extremity [Unknown]
  - Grip strength decreased [Unknown]
  - Decreased appetite [Unknown]
  - Hypokinesia [Unknown]
  - Urinary tract infection [Unknown]
  - Stress [Unknown]
  - Candida infection [Unknown]
  - Weight increased [Unknown]
  - Drug ineffective [Unknown]
